FAERS Safety Report 5779970-5 (Version None)
Quarter: 2008Q2

REPORT INFORMATION
  Report Type: 
  Country: None (occurrence: None)
  Receive Date: 20080620
  Receipt Date: 20080612
  Transmission Date: 20081010
  Serious: No
  Sender: FDA-Public Use
  Company Number: US-JNJFOC-20080603537

PATIENT
  Sex: Female
  Weight: 63.5 kg

DRUGS (13)
  1. INVEGA [Suspect]
     Indication: MAJOR DEPRESSION
     Route: 048
     Dates: start: 20080522, end: 20080523
  2. CLONAZEPAM [Concomitant]
     Indication: ANXIETY
  3. REMERON [Concomitant]
     Indication: DEPRESSION
  4. CYMBALTA [Concomitant]
     Indication: DEPRESSION
  5. BENZATROPINE [Concomitant]
     Indication: AKATHISIA
  6. LIPITOR [Concomitant]
     Indication: BLOOD CHOLESTEROL
  7. ASPIRIN [Concomitant]
  8. ENALAPRIL MALEATE [Concomitant]
  9. ESTRADIOL [Concomitant]
  10. METOPROLOL [Concomitant]
  11. OMEPRAZOLE [Concomitant]
  12. PLAVIX [Concomitant]
  13. HYDROCHLOROTHIAZIDE [Concomitant]

REACTIONS (3)
  - HYPOAESTHESIA [None]
  - MUSCULAR WEAKNESS [None]
  - PARAESTHESIA [None]
